FAERS Safety Report 22864900 (Version 4)
Quarter: 2023Q4

REPORT INFORMATION
  Report Type: Spontaneous
  Country: US (occurrence: US)
  Receive Date: 20230825
  Receipt Date: 20231023
  Transmission Date: 20240110
  Serious: No
  Sender: FDA-Public Use
  Company Number: US-MYLANLABS-2023M1085608

PATIENT
  Sex: Female

DRUGS (6)
  1. SILDENAFIL [Suspect]
     Active Substance: SILDENAFIL
     Indication: Product used for unknown indication
     Dosage: UNK
     Route: 065
     Dates: start: 2023
  2. ORENITRAM [Suspect]
     Active Substance: TREPROSTINIL
     Indication: Pulmonary arterial hypertension
     Dosage: 0.125 MILLIGRAM, TID (THREE TIMES DAILY START DATE: 29-JUL-2023STOP DATE: ??-???-2023)
     Route: 048
  3. ORENITRAM [Suspect]
     Active Substance: TREPROSTINIL
     Dosage: 0.5 MILLIGRAM, TID
     Route: 048
     Dates: start: 2023, end: 2023
  4. ORENITRAM [Suspect]
     Active Substance: TREPROSTINIL
     Dosage: 0.625 MILLIGRAM, TID
     Route: 048
     Dates: start: 2023
  5. ORENITRAM [Suspect]
     Active Substance: TREPROSTINIL
     Dosage: UNK
     Route: 065
     Dates: start: 20230729
  6. OFEV [Suspect]
     Active Substance: NINTEDANIB
     Indication: Product used for unknown indication
     Dosage: UNK
     Route: 065
     Dates: start: 2023

REACTIONS (5)
  - Abdominal pain upper [Recovered/Resolved]
  - Respiration abnormal [Recovering/Resolving]
  - Nausea [Recovered/Resolved]
  - Drug ineffective [Unknown]
  - Therapy interrupted [Unknown]

NARRATIVE: CASE EVENT DATE: 20230101
